FAERS Safety Report 4838174-0 (Version None)
Quarter: 2005Q4

REPORT INFORMATION
  Report Type: 
  Country: None (occurrence: None)
  Receive Date: 20051128
  Receipt Date: 20051118
  Transmission Date: 20060501
  Serious: Yes (Life-Threatening)
  Sender: FDA-Public Use
  Company Number: FR-ABBOTT-05P-056-0317721-00

PATIENT
  Age: 29 Year
  Sex: Male

DRUGS (4)
  1. DEPAKENE [Suspect]
     Indication: BIPOLAR DISORDER
     Route: 048
     Dates: start: 20050504, end: 20050602
  2. MIRTAZAPINE [Suspect]
     Indication: BIPOLAR DISORDER
     Route: 048
     Dates: start: 20050322, end: 20050518
  3. MIRTAZAPINE [Suspect]
     Route: 048
     Dates: start: 20050519, end: 20050602
  4. ALPRAZOLAM [Concomitant]
     Indication: BIPOLAR DISORDER
     Dosage: 1.0MG TO 1.5MG DAILY
     Route: 048
     Dates: start: 20050321

REACTIONS (3)
  - DEPRESSED LEVEL OF CONSCIOUSNESS [None]
  - HEADACHE [None]
  - ROAD TRAFFIC ACCIDENT [None]
